FAERS Safety Report 4422779-5 (Version None)
Quarter: 2004Q3

REPORT INFORMATION
  Report Type: 
  Country: None (occurrence: None)
  Receive Date: 20040719
  Receipt Date: 20030528
  Transmission Date: 20050211
  Serious: Yes (Death)
  Sender: FDA-Public Use
  Company Number: M03-INT-082

PATIENT
  Sex: Female
  Weight: 90 kg

DRUGS (2)
  1. INTEGRILIN [Suspect]
     Indication: CORONARY ANGIOPLASTY
  2. HEPARIN SOLUTION (EXCEPT SYRUP) [Concomitant]

REACTIONS (2)
  - CARDIAC ARREST [None]
  - HAEMORRHAGE [None]
